FAERS Safety Report 19691029 (Version 1)
Quarter: 2021Q3

REPORT INFORMATION
  Report Type: Spontaneous
  Country: IT (occurrence: IT)
  Receive Date: 20210812
  Receipt Date: 20210812
  Transmission Date: 20211014
  Serious: Yes (Other)
  Sender: FDA-Public Use
  Company Number: IT-SUN PHARMACEUTICAL INDUSTRIES LTD-2021R1-307135

PATIENT
  Age: 50 Year
  Sex: Male

DRUGS (1)
  1. PREDNISONE. [Suspect]
     Active Substance: PREDNISONE
     Indication: ADJUVANT THERAPY
     Dosage: 1 MILLIGRAM/KILOGRAM, DAILY
     Route: 065

REACTIONS (1)
  - Condition aggravated [Unknown]
